FAERS Safety Report 4485775-8 (Version None)
Quarter: 2004Q4

REPORT INFORMATION
  Report Type: 
  Country: None (occurrence: None)
  Receive Date: 20041021
  Receipt Date: 20041011
  Transmission Date: 20050328
  Serious: Yes (Other)
  Sender: FDA-Public Use
  Company Number: HQWYE690711OCT04

PATIENT
  Age: 46 Year
  Sex: Female

DRUGS (3)
  1. CONJUGATED ESTROGENS/MEDROXYPROGESTERONE ACETATE (CONJUGATED ESTROGENS [Suspect]
     Indication: HORMONE REPLACEMENT THERAPY
     Dosage: ORAL
     Route: 048
     Dates: start: 20030101, end: 20040826
  2. LORATADINE [Concomitant]
  3. MULTIVITAMINS AND MINERAL SUPPLEMENT (MINERALS NOS/VITAMINS NOS) [Concomitant]

REACTIONS (1)
  - INTRADUCTAL PAPILLOMA OF BREAST [None]
